FAERS Safety Report 9216439 (Version 2)
Quarter: 2013Q2

REPORT INFORMATION
  Report Type: Spontaneous
  Country: GB (occurrence: GB)
  Receive Date: 20130408
  Receipt Date: 20130419
  Transmission Date: 20140414
  Serious: Yes (Death)
  Sender: FDA-Public Use
  Company Number: PHFR2011GB06218

PATIENT
  Sex: Male

DRUGS (3)
  1. CLOZARIL [Suspect]
     Dosage: UNK
     Route: 048
     Dates: start: 20080303, end: 20111019
  2. HALOPERIDOL [Concomitant]
  3. PROCYCLIDINE [Concomitant]

REACTIONS (2)
  - Completed suicide [Fatal]
  - Liver function test abnormal [Unknown]
